FAERS Safety Report 7334999-0 (Version None)
Quarter: 2011Q1

REPORT INFORMATION
  Report Type: 
  Country: None (occurrence: None)
  Receive Date: 20110307
  Receipt Date: 20110225
  Transmission Date: 20110831
  Serious: Yes (Other)
  Sender: FDA-Public Use
  Company Number: US-JNJFOC-20110300529

PATIENT
  Sex: Male

DRUGS (7)
  1. KLONOPIN [Concomitant]
     Indication: SCHIZOAFFECTIVE DISORDER
     Dosage: 1 MG 2 TIMES A DAY
     Route: 048
  2. INVEGA [Suspect]
     Indication: SCHIZOAFFECTIVE DISORDER
     Route: 048
  3. SYNTHROID [Concomitant]
     Indication: HYPOTHYROIDISM
     Dosage: 100 UG PILL, 100 MG ONCE DAILY
     Route: 048
  4. ZESTRIL [Concomitant]
     Indication: HYPERTENSION
     Route: 048
  5. TENEX [Concomitant]
     Indication: HYPERTENSION
     Dosage: 6 MG/PILL/ 2 MG/ 2-PILLS IN AM, 1 PILL IN PM
     Route: 048
  6. METFORMIN [Concomitant]
     Indication: TYPE 2 DIABETES MELLITUS
     Dosage: 100 OMF/TWICE DAILY
     Route: 048
  7. CLONIDINE [Concomitant]
     Indication: HYPERTENSION
     Route: 048

REACTIONS (1)
  - WEIGHT INCREASED [None]
